FAERS Safety Report 4550852-X (Version None)
Quarter: 2004Q4

REPORT INFORMATION
  Report Type: 
  Country: None (occurrence: None)
  Receive Date: 20041217
  Receipt Date: 20041007
  Transmission Date: 20050328
  Serious: No
  Sender: FDA-Public Use
  Company Number: 2004-BP-09744BP(0)

PATIENT
  Age: 77 Year
  Sex: Female

DRUGS (6)
  1. SPIRIVA [Suspect]
     Indication: CHRONIC OBSTRUCTIVE AIRWAYS DISEASE
     Dosage: 18 MCG (18 MCG), IH
     Route: 055
     Dates: start: 20040630
  2. ADVAIR (SERETIDE MITE) [Concomitant]
  3. ATROVENT [Concomitant]
  4. OXYGEN (OXYGEN) [Concomitant]
  5. FUROSEMIDE [Concomitant]
  6. POTASSIUM SUPPLEMENT (POTASSIUM) [Concomitant]

REACTIONS (2)
  - DRUG INEFFECTIVE [None]
  - PULMONARY CONGESTION [None]
